FAERS Safety Report 18517092 (Version 4)
Quarter: 2021Q2

REPORT INFORMATION
  Report Type: Report from Study
  Country: US (occurrence: US)
  Receive Date: 20201118
  Receipt Date: 20210528
  Transmission Date: 20210717
  Serious: No
  Sender: FDA-Public Use
  Company Number: US-TAKEDA-2020TUS047018

PATIENT
  Sex: Female
  Weight: 77 kg

DRUGS (17)
  1. ACETAMINOPHEN. [Concomitant]
     Active Substance: ACETAMINOPHEN
  2. RESTASIS [Concomitant]
     Active Substance: CYCLOSPORINE
  3. PROAIR BRONQUIAL [Concomitant]
  4. PROAIR HFA [Concomitant]
     Active Substance: ALBUTEROL SULFATE
  5. DIPHENHYDRAMINE. [Concomitant]
     Active Substance: DIPHENHYDRAMINE
  6. NORMAL SALINE [Concomitant]
     Active Substance: SODIUM CHLORIDE
  7. EPINEPHRINE. [Concomitant]
     Active Substance: EPINEPHRINE
  8. CARVEDILOL. [Concomitant]
     Active Substance: CARVEDILOL
  9. HUMAN IMMUNOGLOBULIN; HYALURONIDASE [Suspect]
     Active Substance: HUMAN IMMUNOGLOBULIN G\HYALURONIDASE RECOMBINANT HUMAN
     Indication: PRODUCT USED FOR UNKNOWN INDICATION
     Dosage: 37.5 GRAM, Q4WEEKS
     Route: 065
     Dates: start: 20201022
  10. VITAMIN D3 [Concomitant]
     Active Substance: CHOLECALCIFEROL
  11. MULTIVITAMIN (16) [Concomitant]
     Active Substance: VITAMINS
  12. VITAMIN B [Concomitant]
     Active Substance: VITAMIN B
  13. ELIQUIS [Concomitant]
     Active Substance: APIXABAN
  14. MULTIVITAMIN + MINERAL [Concomitant]
     Active Substance: MINERALS\VITAMINS
  15. HUMAN IMMUNOGLOBULIN; HYALURONIDASE [Suspect]
     Active Substance: HUMAN IMMUNOGLOBULIN G\HYALURONIDASE RECOMBINANT HUMAN
     Indication: IMMUNOGLOBULINS INCREASED
     Dosage: 37.5 GRAM, Q4WEEKS
     Route: 058
     Dates: start: 20201022
  16. LIDOCAINE. [Concomitant]
     Active Substance: LIDOCAINE
  17. SINGULAIR [Concomitant]
     Active Substance: MONTELUKAST SODIUM

REACTIONS (9)
  - Skin swelling [Unknown]
  - Asthenia [Unknown]
  - Infusion site pruritus [Unknown]
  - Nausea [Unknown]
  - Infusion related reaction [Unknown]
  - Headache [Unknown]
  - Vomiting [Unknown]
  - Chills [Unknown]
  - Infusion site erythema [Unknown]
